FAERS Safety Report 23814111 (Version 1)
Quarter: 2024Q2

REPORT INFORMATION
  Report Type: Other
  Country: CA (occurrence: None)
  Receive Date: 20240503
  Receipt Date: 20240503
  Transmission Date: 20240715
  Serious: Yes (Other)
  Sender: FDA-Public Use
  Company Number: CA-ROCHE-3551480

PATIENT
  Sex: Male

DRUGS (7)
  1. ACTEMRA [Suspect]
     Active Substance: TOCILIZUMAB
     Indication: Juvenile idiopathic arthritis
     Route: 058
  2. ACTEMRA [Suspect]
     Active Substance: TOCILIZUMAB
     Indication: Uveitis
  3. CELLCEPT [Suspect]
     Active Substance: MYCOPHENOLATE MOFETIL
     Indication: Product used for unknown indication
     Route: 048
     Dates: start: 20240327
  4. ACETAZOLAMIDE [Concomitant]
     Active Substance: ACETAZOLAMIDE
  5. DIAMOX SEQUELS [Concomitant]
     Active Substance: ACETAZOLAMIDE
  6. HULIO [Concomitant]
     Active Substance: ADALIMUMAB-FKJP
  7. ATROPINE [Concomitant]
     Active Substance: ATROPINE\ATROPINE SULFATE

REACTIONS (5)
  - Product taste abnormal [Unknown]
  - Abdominal discomfort [Unknown]
  - Eye disorder [Unknown]
  - Eye haemorrhage [Unknown]
  - Visual impairment [Unknown]
